FAERS Safety Report 13911592 (Version 2)
Quarter: 2017Q4

REPORT INFORMATION
  Report Type: Spontaneous
  Country: JP (occurrence: JP)
  Receive Date: 20170828
  Receipt Date: 20171117
  Transmission Date: 20180320
  Serious: No
  Sender: FDA-Public Use
  Company Number: JP-ELI_LILLY_AND_COMPANY-JP201708007390

PATIENT
  Age: 88 Year
  Sex: Male

DRUGS (6)
  1. BLADDERON [Concomitant]
     Active Substance: FLAVOXATE
     Indication: PRODUCT USED FOR UNKNOWN INDICATION
     Route: 065
  2. ZALUTIA [Suspect]
     Active Substance: TADALAFIL
     Indication: PRODUCT USED FOR UNKNOWN INDICATION
     Dosage: 2.5 MG, BID
     Route: 048
  3. FLIVAS [Concomitant]
     Active Substance: NAFTOPIDIL
     Indication: PRODUCT USED FOR UNKNOWN INDICATION
     Route: 065
  4. WARFARIN [Concomitant]
     Active Substance: WARFARIN
     Indication: PRODUCT USED FOR UNKNOWN INDICATION
     Route: 065
  5. RABEPRAZOLE [Concomitant]
     Active Substance: RABEPRAZOLE
     Indication: PRODUCT USED FOR UNKNOWN INDICATION
     Route: 065
  6. ZALUTIA [Suspect]
     Active Substance: TADALAFIL
     Dosage: 2.5 MG, DAILY
     Route: 048

REACTIONS (1)
  - Vision blurred [Recovered/Resolved]
